FAERS Safety Report 12389876 (Version 3)
Quarter: 2016Q2

REPORT INFORMATION
  Report Type: Spontaneous
  Country: US (occurrence: US)
  Receive Date: 20160520
  Receipt Date: 20160602
  Transmission Date: 20160815
  Serious: No
  Sender: FDA-Public Use
  Company Number: US-JNJFOC-20160508680

PATIENT
  Age: 61 Year
  Sex: Female
  Weight: 56.7 kg

DRUGS (5)
  1. DURAGESIC [Suspect]
     Active Substance: FENTANYL
     Indication: AUTOIMMUNE DISORDER
     Dosage: EVERY 2-3 DAYS
     Route: 062
     Dates: start: 2002
  2. DURAGESIC [Suspect]
     Active Substance: FENTANYL
     Indication: NERVE INJURY
     Dosage: EVERY 2-3 DAYS
     Route: 062
     Dates: start: 2002
  3. DURAGESIC [Suspect]
     Active Substance: FENTANYL
     Indication: SPINAL COLUMN STENOSIS
     Dosage: EVERY 2-3 DAYS
     Route: 062
     Dates: start: 2002
  4. DURAGESIC [Suspect]
     Active Substance: FENTANYL
     Indication: DERMATOMYOSITIS
     Dosage: EVERY 2-3 DAYS
     Route: 062
     Dates: start: 2002
  5. DURAGESIC [Suspect]
     Active Substance: FENTANYL
     Indication: FIBROMYALGIA
     Dosage: EVERY 2-3 DAYS
     Route: 062
     Dates: start: 2002

REACTIONS (8)
  - Product adhesion issue [Unknown]
  - Drug ineffective [Not Recovered/Not Resolved]
  - Wrong technique in product usage process [Unknown]
  - Product impurity [Unknown]
  - Visual impairment [Not Recovered/Not Resolved]
  - Pain [Not Recovered/Not Resolved]
  - Bedridden [Not Recovered/Not Resolved]
  - Product quality issue [Unknown]

NARRATIVE: CASE EVENT DATE: 20160508
